FAERS Safety Report 9163144 (Version 3)
Quarter: 2014Q1

REPORT INFORMATION
  Report Type: Report from Study
  Country: CA (occurrence: CA)
  Receive Date: 20130314
  Receipt Date: 20140103
  Transmission Date: 20141002
  Serious: Yes (Hospitalization, Other)
  Sender: FDA-Public Use
  Company Number: CA-ROCHE-1199605

PATIENT
  Sex: Male
  Weight: 78.5 kg

DRUGS (2)
  1. RITUXAN [Suspect]
     Indication: BLOOD DISORDER
     Dosage: DATE OF LAST DOSE:13/MAR/2013
     Route: 042
     Dates: start: 20130221
  2. PRAVASTATIN [Concomitant]

REACTIONS (2)
  - Cryoglobulinaemia [Unknown]
  - Weight decreased [Not Recovered/Not Resolved]
